FAERS Safety Report 23349777 (Version 1)
Quarter: 2023Q4

REPORT INFORMATION
  Report Type: Spontaneous
  Country: IT (occurrence: IT)
  Receive Date: 20231229
  Receipt Date: 20231229
  Transmission Date: 20240110
  Serious: Yes (Other)
  Sender: FDA-Public Use
  Company Number: IT-STERISCIENCE B.V.-2023-ST-002377

PATIENT
  Age: 64 Year
  Sex: Female

DRUGS (3)
  1. MYCOPHENOLATE MOFETIL [Suspect]
     Active Substance: MYCOPHENOLATE MOFETIL
     Indication: Systemic scleroderma
     Dosage: 2 GRAM, QD
     Route: 065
  2. COVID-19 vaccine [Concomitant]
     Indication: COVID-19 immunisation
     Dosage: TWO DOSES
     Route: 065
  3. COVID-19 vaccine [Concomitant]
     Dosage: BOOSTER DOSE
     Route: 065

REACTIONS (2)
  - Vaccination failure [Unknown]
  - Off label use [Unknown]
